FAERS Safety Report 23250620 (Version 1)
Quarter: 2023Q4

REPORT INFORMATION
  Report Type: Spontaneous
  Country: US (occurrence: None)
  Receive Date: 20231130
  Receipt Date: 20231130
  Transmission Date: 20240110
  Serious: No
  Sender: FDA-Public Use
  Company Number: None

PATIENT
  Age: 65 Year
  Sex: Female
  Weight: 65.25 kg

DRUGS (3)
  1. PROVEN PERSONALIZED DAY MOISTURIZER WITH SPF 50 [Suspect]
     Active Substance: ZINC OXIDE
     Indication: Product used for unknown indication
     Route: 061
     Dates: start: 20231130, end: 20231130
  2. PERSONALIZED DAY MOISTURIZER WITH SPF 50 (ZINC OXIDE) [Suspect]
     Active Substance: ZINC OXIDE
     Indication: Product used for unknown indication
     Route: 061
     Dates: start: 20231130, end: 20231130
  3. VITAMINS [Concomitant]
     Active Substance: VITAMINS

REACTIONS (5)
  - Periorbital swelling [None]
  - Pruritus [None]
  - Erythema [None]
  - Contraindicated product administered [None]
  - Drug hypersensitivity [None]

NARRATIVE: CASE EVENT DATE: 20231130
